FAERS Safety Report 10311518 (Version 2)
Quarter: 2014Q3

REPORT INFORMATION
  Report Type: Spontaneous
  Country: US (occurrence: US)
  Receive Date: 20140717
  Receipt Date: 20140731
  Transmission Date: 20150326
  Serious: Yes (Hospitalization)
  Sender: FDA-Public Use
  Company Number: US-B.I. PHARMACEUTICALS,INC./RIDGEFIELD-2014-BI-32281BP

PATIENT
  Age: 91 Year
  Sex: Female
  Weight: 78.6 kg

DRUGS (13)
  1. SPIRIVA [Suspect]
     Active Substance: TIOTROPIUM BROMIDE MONOHYDRATE
     Indication: CHRONIC OBSTRUCTIVE PULMONARY DISEASE
     Dosage: 18 MCG
     Route: 055
     Dates: start: 2012
  2. SYNTHROID [Concomitant]
     Active Substance: LEVOTHYROXINE SODIUM
     Indication: HYPOTHYROIDISM
     Dosage: 0.25 MG
     Route: 048
     Dates: start: 1994
  3. NYSTATIN. [Concomitant]
     Active Substance: NYSTATIN
     Indication: RASH
     Route: 061
  4. LEVOFLOXACIN [Concomitant]
     Active Substance: LEVOFLOXACIN
     Indication: URINARY TRACT INFECTION
     Dosage: 500 MG
     Route: 048
     Dates: start: 20140630, end: 20140710
  5. METOPROLOL [Concomitant]
     Active Substance: METOPROLOL
     Indication: HYPERTENSION
     Dosage: 10 MG
     Route: 048
  6. FUROSEMIDE. [Concomitant]
     Active Substance: FUROSEMIDE
     Dosage: 10 MG
     Route: 048
  7. PERCOGESIC [Concomitant]
     Indication: CHEST PAIN
  8. NITROGLYCERIN. [Concomitant]
     Active Substance: NITROGLYCERIN
     Indication: CHEST PAIN
     Route: 060
  9. NEURONTIN [Concomitant]
     Active Substance: GABAPENTIN
     Indication: NEUROPATHY PERIPHERAL
     Dosage: 200 MG
     Route: 048
     Dates: start: 2006
  10. CALCIUM [Concomitant]
     Active Substance: CALCIUM
     Dosage: 400 MG
     Route: 048
  11. POTASSIUM [Concomitant]
     Active Substance: POTASSIUM
     Dosage: 10 MEQ
     Route: 048
  12. PERCOGESIC [Concomitant]
     Indication: MUSCULOSKELETAL PAIN
     Route: 048
  13. MAGNESIUM [Concomitant]
     Active Substance: MAGNESIUM
     Dosage: 500 MG
     Route: 048

REACTIONS (4)
  - Pulmonary thrombosis [Recovered/Resolved]
  - Product quality issue [Not Recovered/Not Resolved]
  - Drug ineffective [Not Recovered/Not Resolved]
  - Thrombosis [Recovered/Resolved]

NARRATIVE: CASE EVENT DATE: 201306
